FAERS Safety Report 15057110 (Version 1)
Quarter: 2018Q2

REPORT INFORMATION
  Report Type: Spontaneous
  Country: US (occurrence: US)
  Receive Date: 20180604
  Receipt Date: 20180604
  Transmission Date: 20180711
  Serious: Yes (Hospitalization)
  Sender: FDA-Public Use
  Company Number: None

PATIENT
  Sex: Female

DRUGS (8)
  1. HYZAAR [Concomitant]
     Active Substance: HYDROCHLOROTHIAZIDE\LOSARTAN POTASSIUM
  2. RESTORIL 30MG [Concomitant]
  3. IBRANCE [Suspect]
     Active Substance: PALBOCICLIB
     Indication: BREAST CANCER FEMALE
     Dosage: ?          OTHER FREQUENCY:DAILY X 21/28 DAYS;?
     Route: 048
     Dates: start: 20180313
  4. DRISDOL 50,000 UNITS [Concomitant]
  5. DUONEB SOLUTION [Concomitant]
  6. GLUCOVANCE 5/500 [Concomitant]
  7. LASIX 20MG [Concomitant]
  8. ATIVAN 1MG [Concomitant]

REACTIONS (1)
  - Hospitalisation [None]
